FAERS Safety Report 10591110 (Version 1)
Quarter: 2014Q4

REPORT INFORMATION
  Report Type: Spontaneous
  Country: US (occurrence: None)
  Receive Date: 20141112
  Receipt Date: 20141112
  Transmission Date: 20150529
  Serious: Yes (Hospitalization, Other)
  Sender: FDA-Public Use
  Company Number: US-2013-11441

PATIENT
  Age: 70 Year
  Sex: Female
  Weight: 99.8 kg

DRUGS (9)
  1. ZETIA [Concomitant]
     Active Substance: EZETIMIBE
  2. RIFAXIMIN (RIFAXIMIN) [Concomitant]
  3. ZINC SULFATE (ZINC SULFATE) [Concomitant]
     Active Substance: ZINC SULFATE\ZINC SULFATE ANHYDROUS
  4. URSODIOL (URSODEOXYCHOLIC ACID) [Concomitant]
  5. NEXIUM [Concomitant]
     Active Substance: ESOMEPRAZOLE MAGNESIUM
  6. LACTULOSE (LACTULOSE) [Concomitant]
     Active Substance: LACTULOSE
  7. CIPROFLOXACIN (CIPROFLOXACIN HYDROCHLORIDE) 500 MILLIGRAM, TABLETS) [Concomitant]
     Active Substance: CIPROFLOXACIN\CIPROFLOXACIN HYDROCHLORIDE
  8. SAMSCA [Suspect]
     Active Substance: TOLVAPTAN
     Dates: start: 201305
  9. JANUVIA [Concomitant]
     Active Substance: SITAGLIPTIN PHOSPHATE

REACTIONS (8)
  - Swelling [None]
  - Blood glucose increased [None]
  - Blood potassium increased [None]
  - Chest pain [None]
  - Gastrooesophageal reflux disease [None]
  - Drug ineffective [None]
  - Urinary hesitation [None]
  - Ammonia increased [None]

NARRATIVE: CASE EVENT DATE: 2013
